FAERS Safety Report 14755238 (Version 1)
Quarter: 2018Q2

REPORT INFORMATION
  Report Type: Spontaneous
  Country: GB (occurrence: GB)
  Receive Date: 20180413
  Receipt Date: 20180413
  Transmission Date: 20180711
  Serious: Yes (Other)
  Sender: FDA-Public Use
  Company Number: GB-TEVA-2018-GB-881327

PATIENT
  Age: 77 Year
  Sex: Female

DRUGS (1)
  1. METRONIDAZOLE. [Suspect]
     Active Substance: METRONIDAZOLE
     Indication: ANTIBIOTIC THERAPY
     Dates: start: 20171116, end: 20171121

REACTIONS (9)
  - Dizziness [Recovering/Resolving]
  - Chromaturia [Recovering/Resolving]
  - Vomiting [Recovering/Resolving]
  - Hyperhidrosis [Recovering/Resolving]
  - Dysgeusia [Recovering/Resolving]
  - Headache [Recovering/Resolving]
  - Paraesthesia [Recovering/Resolving]
  - Feeling abnormal [Recovering/Resolving]
  - Hallucination [Recovering/Resolving]

NARRATIVE: CASE EVENT DATE: 20171118
